FAERS Safety Report 10152533 (Version 1)
Quarter: 2014Q2

REPORT INFORMATION
  Report Type: Spontaneous
  Country: US (occurrence: None)
  Receive Date: 20140502
  Receipt Date: 20140502
  Transmission Date: 20141212
  Serious: Yes (Other)
  Sender: FDA-Public Use
  Company Number: None

PATIENT
  Age: 71 Year
  Sex: Female
  Weight: 56.25 kg

DRUGS (6)
  1. PROCTOFOAM [Suspect]
     Indication: HAEMORRHOIDS
     Dosage: PUSH TO EXPEL FOAM?TWICE DAILY?RECTALLY
     Route: 054
     Dates: start: 20140409, end: 20140412
  2. BENAZEPRIL [Concomitant]
  3. LODIPINE [Concomitant]
  4. VIT E [Concomitant]
  5. GAVISCON [Concomitant]
  6. PREPARATION H SUPPOSITORIES [Concomitant]

REACTIONS (5)
  - Burning sensation [None]
  - Pruritus [None]
  - Swelling [None]
  - Fungal infection [None]
  - Oral infection [None]
